FAERS Safety Report 16149567 (Version 1)
Quarter: 2019Q2

REPORT INFORMATION
  Report Type: Spontaneous
  Country: US (occurrence: US)
  Receive Date: 20190227
  Receipt Date: 20190227
  Transmission Date: 20190711
  Serious: Yes (Disabling)
  Sender: FDA-Public Use
  Company Number: None

PATIENT
  Age: 63 Year
  Sex: Male
  Weight: 131.54 kg

DRUGS (5)
  1. VITAMIN C [Concomitant]
     Active Substance: ASCORBIC ACID
  2. CARTIA [Concomitant]
  3. AMLODIPINE BESYLAT [Suspect]
     Active Substance: AMLODIPINE BESYLATE
     Indication: HYPERTENSION
     Dosage: ?          QUANTITY:30 DF DOSAGE FORM;?
     Route: 048
     Dates: start: 20180410, end: 20181023
  4. CARVEDIOL [Concomitant]
     Active Substance: CARVEDILOL
  5. OLEMESARTAN [Concomitant]
     Active Substance: OLMESARTAN

REACTIONS (2)
  - Nausea [None]
  - Anxiety [None]

NARRATIVE: CASE EVENT DATE: 20181023
